FAERS Safety Report 6594423-2 (Version None)
Quarter: 2010Q1

REPORT INFORMATION
  Report Type: 
  Country: None (occurrence: None)
  Receive Date: 20100222
  Receipt Date: 20100215
  Transmission Date: 20100710
  Serious: Yes (Other)
  Sender: FDA-Public Use
  Company Number: B0634941A

PATIENT
  Age: 52 Year
  Sex: Male

DRUGS (4)
  1. LAMIVUDINE [Suspect]
     Dosage: 100MG PER DAY
     Dates: start: 20041001
  2. ADEFOVIR DIPIVOXIL KIT [Suspect]
  3. ENTECAVIR [Suspect]
     Dosage: .5MG PER DAY
     Dates: end: 20080301
  4. INSULIN [Concomitant]

REACTIONS (5)
  - ALANINE AMINOTRANSFERASE ABNORMAL [None]
  - DRUG RESISTANCE [None]
  - HEPATITIS B [None]
  - PATHOGEN RESISTANCE [None]
  - VIRAL INFECTION [None]
